FAERS Safety Report 7916184-4 (Version None)
Quarter: 2011Q4

REPORT INFORMATION
  Report Type: 
  Country: None (occurrence: None)
  Receive Date: 20111116
  Receipt Date: 20111109
  Transmission Date: 20120403
  Serious: No
  Sender: FDA-Public Use
  Company Number: US-BIOGENIDEC-2010BI007488

PATIENT
  Sex: Female

DRUGS (5)
  1. TYSABRI [Suspect]
     Indication: MULTIPLE SCLEROSIS
     Route: 042
     Dates: start: 20070625, end: 20111019
  2. REBIF [Concomitant]
     Indication: MULTIPLE SCLEROSIS
  3. CLONAZEPAM [Concomitant]
     Indication: INSOMNIA
  4. LEVOXYL [Concomitant]
     Indication: HYPOTHYROIDISM
  5. ENABLEX [Concomitant]
     Indication: STRESS URINARY INCONTINENCE

REACTIONS (7)
  - MUSCULAR WEAKNESS [None]
  - HYPOTHYROIDISM [None]
  - BLINDNESS UNILATERAL [None]
  - MEMORY IMPAIRMENT [None]
  - VISUAL IMPAIRMENT [None]
  - INJECTION SITE INFLAMMATION [None]
  - INSOMNIA [None]
